FAERS Safety Report 10638445 (Version 1)
Quarter: 2014Q4

REPORT INFORMATION
  Report Type: Spontaneous
  Country: US (occurrence: US)
  Receive Date: 20141208
  Receipt Date: 20141208
  Transmission Date: 20150529
  Serious: Yes (Other)
  Sender: FDA-Public Use
  Company Number: US-ACTAVIS-2014-26087

PATIENT
  Age: 68 Year
  Sex: Female
  Weight: 50 kg

DRUGS (2)
  1. FENTANYL-25 (WATSON LABORATORIES) [Suspect]
     Active Substance: FENTANYL
     Indication: PAIN
     Dosage: 2 PATCH EVERY 72 HOURS
     Route: 062
     Dates: start: 20141124
  2. FENTANYL-25 (WATSON LABORATORIES) [Suspect]
     Active Substance: FENTANYL
     Dosage: 1 PATCH EVERY 72 HOURS
     Route: 062

REACTIONS (7)
  - Weight decreased [Not Recovered/Not Resolved]
  - Urinary tract infection [Unknown]
  - Abdominal discomfort [Recovering/Resolving]
  - Burning sensation [Recovered/Resolved]
  - Drug ineffective [Recovered/Resolved]
  - Nausea [Recovering/Resolving]
  - Drug withdrawal syndrome [Recovering/Resolving]

NARRATIVE: CASE EVENT DATE: 2014
